FAERS Safety Report 24311865 (Version 1)
Quarter: 2024Q3

REPORT INFORMATION
  Report Type: Spontaneous
  Country: US (occurrence: None)
  Receive Date: 20240911
  Receipt Date: 20240911
  Transmission Date: 20241016
  Serious: Yes (Hospitalization)
  Sender: Public
  Company Number: None

PATIENT
  Age: 64 Year
  Sex: Female

DRUGS (1)
  1. IDHIFA [Suspect]
     Active Substance: ENASIDENIB MESYLATE
     Indication: Peripheral T-cell lymphoma unspecified
     Dosage: FREQUENCY : DAILY;?

REACTIONS (3)
  - Pneumonia [None]
  - Limb discomfort [None]
  - Skin tightness [None]
